FAERS Safety Report 6422505-4 (Version None)
Quarter: 2009Q4

REPORT INFORMATION
  Report Type: 
  Country: None (occurrence: None)
  Receive Date: 20091102
  Receipt Date: 20091021
  Transmission Date: 20100525
  Serious: Yes (Disabling)
  Sender: FDA-Public Use
  Company Number: JP-ASTRAZENECA-2009SE20225

PATIENT
  Age: 39 Year
  Sex: Female
  Weight: 94 kg

DRUGS (14)
  1. SEROQUEL [Suspect]
     Route: 048
     Dates: start: 20081001, end: 20090603
  2. RISPERDAL [Concomitant]
  3. CONSTAN [Concomitant]
  4. TASMOLIN [Concomitant]
  5. RISUMIC [Concomitant]
  6. SELBEX [Concomitant]
  7. EURODIN [Concomitant]
  8. VEGETAMIN [Concomitant]
  9. ROHYPNOL [Concomitant]
  10. LODOPIN [Concomitant]
  11. QUAZEPAM [Concomitant]
  12. THEO-DUR [Concomitant]
  13. HOKUNALIN [Concomitant]
  14. LENDORMIN [Concomitant]

REACTIONS (2)
  - OBESITY [None]
  - SLEEP APNOEA SYNDROME [None]
